FAERS Safety Report 7540631-3 (Version None)
Quarter: 2011Q2

REPORT INFORMATION
  Report Type: 
  Country: None (occurrence: None)
  Receive Date: 20110610
  Receipt Date: 20110609
  Transmission Date: 20111010
  Serious: Yes (Death)
  Sender: FDA-Public Use
  Company Number: ES-PFIZER INC-2011101782

PATIENT
  Age: 97 Year
  Sex: Female

DRUGS (6)
  1. PRAREDUCT [Concomitant]
     Indication: DYSLIPIDAEMIA
     Dosage: 40 MG, 1X/DAY
     Route: 048
     Dates: start: 20081020
  2. REXER [Concomitant]
     Indication: DEPRESSION
     Dosage: 30 MG, 1X/DAY
     Route: 048
     Dates: start: 20100101
  3. CHLORTHALIDONE [Concomitant]
     Indication: MYOCARDIAL INFARCTION
     Dosage: 50 MG, 1X/DAY
     Route: 048
     Dates: start: 20070410
  4. NOLOTIL /SPA/ [Concomitant]
     Indication: PAIN
     Dosage: 575 MG, 1X/DAY
     Route: 048
     Dates: start: 20080606, end: 20110114
  5. LYRICA [Suspect]
     Indication: PAIN
     Dosage: 150 MG, 2X/DAY
     Route: 048
     Dates: start: 20101202, end: 20110114
  6. SINTROM [Suspect]
     Indication: MYOCARDIAL INFARCTION
     Dosage: UNK
     Route: 048
     Dates: start: 20091214, end: 20110114

REACTIONS (1)
  - IDIOPATHIC THROMBOCYTOPENIC PURPURA [None]
